FAERS Safety Report 8560071-8 (Version None)
Quarter: 2012Q3

REPORT INFORMATION
  Report Type: 
  Country: None (occurrence: None)
  Receive Date: 20120802
  Receipt Date: 20120725
  Transmission Date: 20120928
  Serious: Yes (Hospitalization, Other)
  Sender: FDA-Public Use
  Company Number: JP-VERTEX PHARMACEUTICALS INC.-AE-2012-010001

PATIENT
  Age: 60 Year
  Sex: Female

DRUGS (10)
  1. PEG-INTRON [Concomitant]
     Indication: HEPATITIS C
     Route: 058
     Dates: start: 20120523, end: 20120617
  2. LITHIUM CARBONATE [Concomitant]
     Route: 048
  3. REBETOL [Concomitant]
     Route: 048
     Dates: start: 20120611, end: 20120617
  4. ATENOLOL [Concomitant]
     Route: 048
  5. GLYCYRON [Concomitant]
     Route: 048
  6. OLMESARTAN MEDOXOMIL [Concomitant]
     Route: 048
  7. TELAVIC (TELAPREVIR) [Suspect]
     Indication: HEPATITIS C
     Route: 048
     Dates: start: 20120523, end: 20120617
  8. REBETOL [Concomitant]
     Indication: HEPATITIS C
     Route: 048
     Dates: start: 20120523, end: 20120610
  9. REPTOR [Concomitant]
     Route: 048
  10. AMLODIPINE [Concomitant]
     Route: 048

REACTIONS (7)
  - ANAEMIA [None]
  - MALAISE [None]
  - RASH [None]
  - RASH GENERALISED [None]
  - RENAL IMPAIRMENT [None]
  - HYPERURICAEMIA [None]
  - PRURITUS [None]
